FAERS Safety Report 7252935-2 (Version None)
Quarter: 2011Q1

REPORT INFORMATION
  Report Type: 
  Country: None (occurrence: None)
  Receive Date: 20110129
  Receipt Date: 20100323
  Transmission Date: 20110831
  Serious: No
  Sender: FDA-Public Use
  Company Number: US-ABBOTT-10P-163-0633758-00

PATIENT
  Sex: Female
  Weight: 87.168 kg

DRUGS (11)
  1. HYDROCHLOROTHIAZIDE [Concomitant]
     Indication: DIURETIC THERAPY
     Dosage: 1/2 TAB 1 DAY AND 1 NEXT DAY, ALTERNATES
     Route: 048
  2. IRON [Concomitant]
     Indication: MINERAL SUPPLEMENTATION
     Route: 048
  3. METFORMIN [Concomitant]
     Indication: DIABETES MELLITUS
     Route: 048
  4. LANSOPRAZOLE [Concomitant]
     Indication: GASTROOESOPHAGEAL REFLUX DISEASE
     Route: 048
  5. EVISTA [Concomitant]
     Indication: HORMONE REPLACEMENT THERAPY
     Route: 048
  6. MOEXIPRIL HYDROCHLORIDE [Concomitant]
     Indication: HYPERTENSION
     Route: 048
  7. METOPROLOL [Concomitant]
     Indication: HYPERTENSION
     Route: 048
  8. LOVASTATIN [Concomitant]
     Indication: BLOOD CHOLESTEROL INCREASED
     Route: 048
  9. GLIMEPIRIDE [Concomitant]
     Indication: DIABETES MELLITUS
     Route: 048
  10. HUMIRA [Suspect]
     Indication: CUTANEOUS SARCOIDOSIS
     Route: 058
     Dates: start: 20081201
  11. MIRAPEX [Concomitant]
     Indication: RESTLESS LEGS SYNDROME
     Route: 048

REACTIONS (4)
  - COUGH [None]
  - SINUSITIS [None]
  - SNEEZING [None]
  - SINUS CONGESTION [None]
